FAERS Safety Report 16624488 (Version 2)
Quarter: 2019Q3

REPORT INFORMATION
  Report Type: Spontaneous
  Country: DE (occurrence: DE)
  Receive Date: 20190724
  Receipt Date: 20190806
  Transmission Date: 20191004
  Serious: Yes (Hospitalization, Other)
  Sender: FDA-Public Use
  Company Number: DE-AUROBINDO-AUR-APL-2019-043046

PATIENT

DRUGS (9)
  1. PRAVASIN [Suspect]
     Active Substance: PRAVASTATIN SODIUM
     Indication: VASCULAR GRAFT
     Dosage: 10 MILLIGRAM
     Route: 065
  2. LISINOPRIL. [Suspect]
     Active Substance: LISINOPRIL
     Indication: VASCULAR GRAFT
     Dosage: 5 MILLIGRAM, DAILY
     Route: 065
     Dates: start: 2003
  3. JODID [Concomitant]
     Active Substance: IODINE
     Indication: PRODUCT USED FOR UNKNOWN INDICATION
     Dosage: 200 MICROGRAM, ONCE A DAY (1 TABLET DAILY)
     Route: 065
  4. XUSAL [Concomitant]
     Active Substance: LEVOCETIRIZINE DIHYDROCHLORIDE
     Indication: PRODUCT USED FOR UNKNOWN INDICATION
     Dosage: 0.5 MILLIGRAM, ONCE A DAY (1 TABLET DAILY FOR ABOUT 10 YEARS)
     Route: 065
     Dates: start: 2009
  5. TAMSULOSIN AL [Concomitant]
     Indication: PRODUCT USED FOR UNKNOWN INDICATION
     Dosage: 0.4 MILLIGRAM, TWO TIMES A DAY (FOR ABOUT 10 YEARS EVERY 2ND DAY 1 TABLET)
     Route: 065
     Dates: start: 2009
  6. LISINOPRIL. [Suspect]
     Active Substance: LISINOPRIL
     Dosage: 2,5MG - 5MG AS NEEDED FOR SEVERAL WEEKS
     Route: 065
     Dates: start: 2019
  7. PRAVASIN [Suspect]
     Active Substance: PRAVASTATIN SODIUM
     Dosage: 20 MILLIGRAM, ONCE A DAY
     Route: 065
     Dates: start: 2003
  8. PRAVASIN [Suspect]
     Active Substance: PRAVASTATIN SODIUM
     Dosage: 20 MILLIGRAM, TAKING IN THE LAST TWO YEARS
     Route: 065
     Dates: end: 201904
  9. ASPIRIN PROTECT [Concomitant]
     Active Substance: ASPIRIN
     Indication: VASCULAR GRAFT
     Dosage: 100 MILLIGRAM, ONCE A DAY (1 TABLET DAILY)
     Route: 065
     Dates: start: 2003

REACTIONS (8)
  - Dermatitis [Unknown]
  - Chills [Unknown]
  - Swelling face [Unknown]
  - Pollakiuria [Unknown]
  - Hypersensitivity [Unknown]
  - Blood pressure fluctuation [Unknown]
  - Weight decreased [Unknown]
  - Adverse reaction [Unknown]
